FAERS Safety Report 11696912 (Version 5)
Quarter: 2016Q1

REPORT INFORMATION
  Report Type: Spontaneous
  Country: US (occurrence: US)
  Receive Date: 20151104
  Receipt Date: 20160307
  Transmission Date: 20160525
  Serious: Yes (Hospitalization, Disabling, Other)
  Sender: FDA-Public Use
  Company Number: US-JNJFOC-20151020607

PATIENT
  Age: 57 Year
  Sex: Female

DRUGS (5)
  1. BONIVA [Concomitant]
     Active Substance: IBANDRONATE SODIUM
     Route: 065
  2. LEVAQUIN [Suspect]
     Active Substance: LEVOFLOXACIN
     Indication: PNEUMONIA
     Route: 048
     Dates: start: 20110529, end: 20110605
  3. TYLENOL [Suspect]
     Active Substance: ACETAMINOPHEN
     Indication: PRODUCT USED FOR UNKNOWN INDICATION
     Route: 065
  4. PREMPRO [Concomitant]
     Active Substance: ESTROGENS, CONJUGATED\MEDROXYPROGESTERONE ACETATE
     Route: 065
  5. PERCOCET [Suspect]
     Active Substance: ACETAMINOPHEN\OXYCODONE HYDROCHLORIDE
     Indication: PAIN
     Route: 065

REACTIONS (5)
  - Acute hepatic failure [Unknown]
  - Tendon disorder [Not Recovered/Not Resolved]
  - Ligament rupture [Not Recovered/Not Resolved]
  - Tendon rupture [Recovering/Resolving]
  - Tendonitis [Recovering/Resolving]

NARRATIVE: CASE EVENT DATE: 2011
